FAERS Safety Report 16694303 (Version 2)
Quarter: 2019Q3

REPORT INFORMATION
  Report Type: Spontaneous
  Country: US (occurrence: US)
  Receive Date: 20190812
  Receipt Date: 20190923
  Transmission Date: 20191004
  Serious: Yes (Hospitalization, Other)
  Sender: FDA-Public Use
  Company Number: US-ELI_LILLY_AND_COMPANY-US201908001206

PATIENT
  Sex: Female

DRUGS (5)
  1. HUMULIN R [Suspect]
     Active Substance: INSULIN HUMAN
     Indication: DIABETES MELLITUS
     Dosage: UNK, UNKNOWN
     Route: 065
  2. LANTUS [Concomitant]
     Active Substance: INSULIN GLARGINE
     Indication: PRODUCT USED FOR UNKNOWN INDICATION
     Dosage: 60 U, BID
     Route: 065
     Dates: start: 2018
  3. INH [Suspect]
     Active Substance: ISONIAZID
     Indication: TUBERCULOSIS
     Dosage: UNK, UNKNOWN
     Route: 065
     Dates: start: 201712
  4. OXYGEN. [Concomitant]
     Active Substance: OXYGEN
     Indication: PRODUCT USED FOR UNKNOWN INDICATION
     Dosage: UNK
     Dates: start: 1994
  5. HUMULIN R [Suspect]
     Active Substance: INSULIN HUMAN
     Indication: DIABETES MELLITUS
     Dosage: CAN BE 120 UNITS PER DAY
     Route: 065
     Dates: start: 201808

REACTIONS (16)
  - Sepsis [Recovering/Resolving]
  - Injection site bruising [Unknown]
  - Pneumonia staphylococcal [Unknown]
  - Central pain syndrome [Unknown]
  - Respiratory syncytial virus infection [Unknown]
  - Urinary tract infection [Unknown]
  - Drug resistance [Unknown]
  - Cerebrovascular accident [Unknown]
  - Blood glucose increased [Unknown]
  - Retinal tear [Unknown]
  - Muscle disorder [Unknown]
  - Injection site pain [Unknown]
  - Migraine [Unknown]
  - Cerebrovascular accident [Unknown]
  - Infection [Unknown]
  - Joint dislocation [Unknown]

NARRATIVE: CASE EVENT DATE: 20190401
